FAERS Safety Report 12435662 (Version 1)
Quarter: 2016Q2

REPORT INFORMATION
  Report Type: Spontaneous
  Country: US (occurrence: US)
  Receive Date: 20160603
  Receipt Date: 20160603
  Transmission Date: 20160815
  Serious: No
  Sender: FDA-Public Use
  Company Number: US-ROCHE-1684308

PATIENT
  Sex: Female

DRUGS (2)
  1. ACTEMRA [Suspect]
     Active Substance: TOCILIZUMAB
     Dosage: EVERY 2 WEEKS
     Route: 058
     Dates: start: 201512
  2. ACTEMRA [Suspect]
     Active Substance: TOCILIZUMAB
     Indication: RHEUMATOID ARTHRITIS
     Dosage: 0.9ML
     Route: 058
     Dates: start: 20151124

REACTIONS (6)
  - Urticaria [Not Recovered/Not Resolved]
  - Oral pain [Unknown]
  - Mass [Not Recovered/Not Resolved]
  - Fatigue [Not Recovered/Not Resolved]
  - Feeling abnormal [Unknown]
  - Hypersomnia [Not Recovered/Not Resolved]
